FAERS Safety Report 7216666-7 (Version None)
Quarter: 2011Q1

REPORT INFORMATION
  Report Type: 
  Country: None (occurrence: None)
  Receive Date: 20110110
  Receipt Date: 20101230
  Transmission Date: 20110831
  Serious: No
  Sender: FDA-Public Use
  Company Number: US-BIOGENIDEC-2011BI000393

PATIENT
  Age: 27 Year
  Sex: Female

DRUGS (3)
  1. TYSABRI [Suspect]
     Indication: MULTIPLE SCLEROSIS
     Route: 042
     Dates: start: 20090522
  2. AMPYRA [Concomitant]
     Dates: start: 20101001
  3. TYSABRI [Suspect]
     Route: 042
     Dates: start: 20080423, end: 20090128

REACTIONS (3)
  - FALL [None]
  - PAIN IN EXTREMITY [None]
  - FATIGUE [None]
